FAERS Safety Report 12516407 (Version 2)
Quarter: 2016Q3

REPORT INFORMATION
  Report Type: Spontaneous
  Country: US (occurrence: US)
  Receive Date: 20160630
  Receipt Date: 20160912
  Transmission Date: 20161109
  Serious: Yes (Hospitalization)
  Sender: FDA-Public Use
  Company Number: US-JNJFOC-20160504226

PATIENT
  Age: 35 Year
  Sex: Female

DRUGS (1)
  1. XARELTO [Suspect]
     Active Substance: RIVAROXABAN
     Indication: PULMONARY EMBOLISM
     Dosage: VARYING DOSES OF 15 MG AND 20 MG.
     Route: 048
     Dates: start: 20140627, end: 20140712

REACTIONS (2)
  - Haemorrhagic anaemia [Unknown]
  - Menorrhagia [Unknown]

NARRATIVE: CASE EVENT DATE: 20140712
